FAERS Safety Report 12196019 (Version 1)
Quarter: 2016Q1

REPORT INFORMATION
  Report Type: Spontaneous
  Country: JP (occurrence: JP)
  Receive Date: 20160321
  Receipt Date: 20160321
  Transmission Date: 20160526
  Serious: Yes (Other)
  Sender: FDA-Public Use
  Company Number: JP-EISAI MEDICAL RESEARCH-EC-2016-015336

PATIENT
  Sex: Male

DRUGS (1)
  1. ARICEPT [Suspect]
     Active Substance: DONEPEZIL HYDROCHLORIDE
     Indication: PRODUCT USED FOR UNKNOWN INDICATION
     Route: 048
     Dates: start: 201503

REACTIONS (7)
  - Seizure [Unknown]
  - Anaemia [Unknown]
  - Aggression [Unknown]
  - Pericardial effusion [Unknown]
  - Cardiac failure [Unknown]
  - Agitation [Unknown]
  - Oedema [Unknown]

NARRATIVE: CASE EVENT DATE: 2015
